FAERS Safety Report 6467450-3 (Version None)
Quarter: 2009Q4

REPORT INFORMATION
  Report Type: 
  Country: None (occurrence: None)
  Receive Date: 20091202
  Receipt Date: 20091123
  Transmission Date: 20100525
  Serious: Yes (Other)
  Sender: FDA-Public Use
  Company Number: B0609776A

PATIENT
  Age: 67 Year

DRUGS (5)
  1. ROSIGLITAZONE [Suspect]
  2. AMLODIPINE [Concomitant]
     Indication: HYPERTENSION
  3. BENAZEPRIL HYDROCHLORIDE [Concomitant]
     Indication: HYPERTENSION
  4. METFORMIN HYDROCHLORIDE [Concomitant]
  5. GLIPIZIDE [Concomitant]

REACTIONS (3)
  - EXOPHTHALMOS [None]
  - EYELID OEDEMA [None]
  - LID LAG [None]
